FAERS Safety Report 21307615 (Version 3)
Quarter: 2023Q2

REPORT INFORMATION
  Report Type: Spontaneous
  Country: JP (occurrence: None)
  Receive Date: 20220908
  Receipt Date: 20230530
  Transmission Date: 20230721
  Serious: Yes (Other)
  Sender: FDA-Public Use
  Company Number: JP-ROCHE-3175602

PATIENT
  Sex: Female

DRUGS (14)
  1. VALGANCICLOVIR HYDROCHLORIDE [Suspect]
     Active Substance: VALGANCICLOVIR HYDROCHLORIDE
     Indication: Product used for unknown indication
     Route: 048
  2. VALGANCICLOVIR HYDROCHLORIDE [Suspect]
     Active Substance: VALGANCICLOVIR HYDROCHLORIDE
     Route: 048
  3. GANCICLOVIR [Suspect]
     Active Substance: GANCICLOVIR
     Indication: Product used for unknown indication
     Route: 041
  4. ETIZOLAM [Suspect]
     Active Substance: ETIZOLAM
     Indication: Product used for unknown indication
     Route: 048
  5. ETHYL LOFLAZEPATE [Concomitant]
     Active Substance: ETHYL LOFLAZEPATE
     Route: 048
  6. LIDOCAINE HYDROCHLORIDE [Concomitant]
     Active Substance: LIDOCAINE HYDROCHLORIDE
  7. ATROPINE SULFATE [Concomitant]
     Active Substance: ATROPINE SULFATE
  8. PENTAZOCINE HYDROCHLORIDE [Concomitant]
     Active Substance: PENTAZOCINE HYDROCHLORIDE
  9. FLUMAZENIL [Concomitant]
     Active Substance: FLUMAZENIL
  10. DORMICUM [Concomitant]
  11. PENICILLIN G SODIUM [Concomitant]
     Active Substance: PENICILLIN G SODIUM
  12. MICAFUNGIN SODIUM [Concomitant]
     Active Substance: MICAFUNGIN SODIUM
  13. PREDONINE [Concomitant]
     Active Substance: PREDNISOLONE
  14. ACYCLOVIR [Concomitant]
     Active Substance: ACYCLOVIR
     Dosage: SOLUTION FOR INFUSION

REACTIONS (9)
  - Cataract [Unknown]
  - Renal impairment [Unknown]
  - Nephrotic syndrome [Unknown]
  - Dizziness [Unknown]
  - Hyperhidrosis [Unknown]
  - Vision blurred [Unknown]
  - Oedema [Unknown]
  - Visual impairment [Unknown]
  - Inappropriate schedule of product administration [Unknown]
